FAERS Safety Report 7770802-2 (Version None)
Quarter: 2011Q3

REPORT INFORMATION
  Report Type: 
  Country: None (occurrence: None)
  Receive Date: 20110922
  Receipt Date: 20110210
  Transmission Date: 20111222
  Serious: Yes (Other)
  Sender: FDA-Public Use
  Company Number: US-ASTRAZENECA-2011SE08195

PATIENT
  Age: 63 Year
  Sex: Female
  Weight: 88 kg

DRUGS (4)
  1. PREVACID [Concomitant]
  2. PREMARIN [Concomitant]
  3. SEROQUEL XR [Suspect]
     Indication: FIBROMYALGIA
     Route: 048
     Dates: start: 20110120, end: 20110125
  4. SYNTHROID [Concomitant]

REACTIONS (14)
  - INCREASED APPETITE [None]
  - CHEST PAIN [None]
  - CARDIAC DISCOMFORT [None]
  - CRYING [None]
  - IRRITABILITY [None]
  - ASTHENIA [None]
  - SUICIDAL IDEATION [None]
  - BLOOD PRESSURE INCREASED [None]
  - SWELLING FACE [None]
  - MEMORY IMPAIRMENT [None]
  - DYSPNOEA [None]
  - LIP SWELLING [None]
  - MENTAL IMPAIRMENT [None]
  - DIZZINESS [None]
